FAERS Safety Report 21168146 (Version 1)
Quarter: 2022Q3

REPORT INFORMATION
  Report Type: Spontaneous
  Country: US (occurrence: None)
  Receive Date: 20220803
  Receipt Date: 20220803
  Transmission Date: 20221026
  Serious: Yes (Hospitalization)
  Sender: FDA-Public Use
  Company Number: None

PATIENT
  Age: 72 Year
  Sex: Male

DRUGS (2)
  1. INLYTA [Suspect]
     Active Substance: AXITINIB
     Indication: Metastatic renal cell carcinoma
     Dosage: FREQUENCY : TWICE A DAY;?
     Route: 002
     Dates: start: 20211104, end: 20220328
  2. PEMBROLIZUMAB [Concomitant]
     Active Substance: PEMBROLIZUMAB
     Dates: start: 20211104

REACTIONS (4)
  - Hyponatraemia [None]
  - Fatigue [None]
  - Ejection fraction decreased [None]
  - Fatigue [None]

NARRATIVE: CASE EVENT DATE: 20220208
